FAERS Safety Report 15337654 (Version 1)
Quarter: 2018Q3

REPORT INFORMATION
  Report Type: Spontaneous
  Country: PL (occurrence: PL)
  Receive Date: 20180831
  Receipt Date: 20180831
  Transmission Date: 20181010
  Serious: Yes (Other)
  Sender: FDA-Public Use
  Company Number: PL-ROCHE-2175949

PATIENT
  Age: 52 Year
  Sex: Female

DRUGS (12)
  1. DOXORUBICINE [Suspect]
     Active Substance: DOXORUBICIN
     Dosage: 6 CYCLES, LIPOSOMAL FORM
     Route: 065
     Dates: start: 201702, end: 201707
  2. PREDNISOLONE. [Suspect]
     Active Substance: PREDNISOLONE
     Dosage: 6 CYCLES
     Route: 065
     Dates: start: 201702, end: 201707
  3. DOXORUBICINE [Suspect]
     Active Substance: DOXORUBICIN
     Indication: B-CELL LYMPHOMA
     Dosage: 8 CYCLES
     Route: 065
     Dates: start: 201312, end: 201405
  4. VINCRISTINE [Suspect]
     Active Substance: VINCRISTINE
     Dosage: 6 CYCLES
     Route: 065
     Dates: start: 201702, end: 201707
  5. GAZYVARO [Suspect]
     Active Substance: OBINUTUZUMAB
     Indication: B-CELL LYMPHOMA
     Dosage: IN 1,8,15 DAY IN 1 CYCLE AND IN 1DAY IN 2?6 CYCLES
     Route: 042
     Dates: start: 201802, end: 201806
  6. RITUXIMAB. [Suspect]
     Active Substance: RITUXIMAB
     Dosage: 6 CYCLES
     Route: 065
     Dates: start: 201702, end: 201707
  7. RITUXIMAB. [Suspect]
     Active Substance: RITUXIMAB
     Indication: B-CELL LYMPHOMA
     Dosage: 8 CYCLES
     Route: 065
     Dates: start: 201312, end: 201405
  8. PREDNISOLONE. [Suspect]
     Active Substance: PREDNISOLONE
     Indication: B-CELL LYMPHOMA
     Dosage: 8 CYCLES
     Route: 065
     Dates: start: 201312, end: 201405
  9. VINCRISTINE [Suspect]
     Active Substance: VINCRISTINE
     Indication: B-CELL LYMPHOMA
     Dosage: 8 CYCLES
     Route: 065
     Dates: start: 201312, end: 201405
  10. CYCLOPHOSPHAMIDE. [Suspect]
     Active Substance: CYCLOPHOSPHAMIDE
     Dosage: 6 CYCLES
     Route: 065
     Dates: start: 201702, end: 201707
  11. RITUXIMAB. [Suspect]
     Active Substance: RITUXIMAB
     Dosage: SUPPORTIVE TREATMENT, EVERY 2 MONTHS, 5 DOSES
     Route: 065
     Dates: start: 201412, end: 201508
  12. CYCLOPHOSPHAMIDE. [Suspect]
     Active Substance: CYCLOPHOSPHAMIDE
     Indication: B-CELL LYMPHOMA
     Dosage: 8 CYCLES
     Route: 065
     Dates: start: 201312, end: 201405

REACTIONS (4)
  - Thrombocytopenia [Unknown]
  - B-cell lymphoma [Unknown]
  - Malignant neoplasm of orbit [Unknown]
  - Ocular lymphoma [Unknown]
